FAERS Safety Report 15388752 (Version 1)
Quarter: 2018Q4

REPORT INFORMATION
  Report Type: Other
  Country: DE (occurrence: DE)
  Receive Date: 20180916
  Receipt Date: 20180916
  Transmission Date: 20190204
  Serious: Yes (Other)
  Sender: FDA-Public Use
  Company Number: DE-ACCORD-071657

PATIENT

DRUGS (5)
  1. ANTITHYMOCYTE IMMUNOGLOBULIN [Suspect]
     Active Substance: THYMOCYTE IMMUNE GLOBULIN NOS
     Indication: RENAL TRANSPLANT
     Dosage: UNK
     Route: 065
  2. MYCOPHENOLATE MOFETIL/MYCOPHENOLATE SODIUM/MYCOPHENOLIC ACID [Suspect]
     Active Substance: MYCOPHENOLIC ACID
     Indication: RENAL TRANSPLANT
     Route: 065
  3. TACROLIMUS. [Suspect]
     Active Substance: TACROLIMUS
     Indication: RENAL TRANSPLANT
     Route: 065
  4. RITUXIMAB. [Suspect]
     Active Substance: RITUXIMAB
     Indication: CHRONIC ALLOGRAFT NEPHROPATHY
  5. BORTEZOMIBE [Suspect]
     Active Substance: BORTEZOMIB
     Indication: CHRONIC ALLOGRAFT NEPHROPATHY
     Route: 065

REACTIONS (3)
  - Drug resistance [Unknown]
  - Product use in unapproved indication [Unknown]
  - Kidney transplant rejection [Unknown]
